FAERS Safety Report 25098024 (Version 2)
Quarter: 2025Q2

REPORT INFORMATION
  Report Type: Spontaneous
  Country: US (occurrence: US)
  Receive Date: 20250320
  Receipt Date: 20250613
  Transmission Date: 20250716
  Serious: No
  Sender: SANOFI AVENTIS
  Company Number: US-SA-2025SA077057

PATIENT
  Age: 45 Year
  Sex: Female

DRUGS (1)
  1. DUPIXENT [Suspect]
     Active Substance: DUPILUMAB
     Indication: Psoriasis
     Dosage: 300 MG, QOW
     Route: 058

REACTIONS (9)
  - Skin fissures [Unknown]
  - Blister [Unknown]
  - Skin haemorrhage [Unknown]
  - Dry skin [Unknown]
  - Skin exfoliation [Unknown]
  - Rash [Unknown]
  - Psoriasis [Unknown]
  - Therapeutic response shortened [Unknown]
  - Product use in unapproved indication [Unknown]
